FAERS Safety Report 17937781 (Version 1)
Quarter: 2020Q2

REPORT INFORMATION
  Report Type: Spontaneous
  Country: DE (occurrence: DE)
  Receive Date: 20200624
  Receipt Date: 20200624
  Transmission Date: 20200714
  Serious: Yes (Death, Hospitalization)
  Sender: FDA-Public Use
  Company Number: DE-TEVA-2020-DE-1790482

PATIENT
  Age: 78 Year
  Sex: Male
  Weight: 96 kg

DRUGS (12)
  1. METOCLOPRAMID [Concomitant]
     Active Substance: METOCLOPRAMIDE
     Dosage: REQUIREMENT
  2. METAMIZOL [Concomitant]
     Active Substance: METAMIZOLE SODIUM
     Dosage: 500 MG, NEED
  3. AMIODARON [Suspect]
     Active Substance: AMIODARONE
     Dosage: 200 MILLIGRAM DAILY; 1-0-0-0
  4. PANTOPRAZOL [Concomitant]
     Active Substance: PANTOPRAZOLE SODIUM
     Dosage: 40 MG
  5. SERTRALIN [Concomitant]
     Active Substance: SERTRALINE HYDROCHLORIDE
     Dosage: 100 MILLIGRAM DAILY; 1-0-0-0
  6. TAMSULOSIN [Concomitant]
     Active Substance: TAMSULOSIN
     Dosage: .4 MILLIGRAM DAILY; 1-0-0-0
  7. ACETYLSALICYLS?URE [Concomitant]
     Active Substance: ASPIRIN
     Dosage: 100 MILLIGRAM DAILY;  0-1-0-0
  8. BISOPROLOL [Suspect]
     Active Substance: BISOPROLOL
     Dosage: .5 DOSAGE FORMS DAILY; 10 MG, 0-0-0.5-0
  9. CANDESARTAN/HYDROCHLOROTHIAZID [Concomitant]
     Active Substance: CANDESARTAN CILEXETIL\HYDROCHLOROTHIAZIDE
     Dosage: .5 DOSAGE FORMS DAILY; 32|25 MG, 0.5-0-0-0
  10. NALOXON/TILIDIN [Concomitant]
     Dosage: 8 | 100 MG, NEED
  11. ELEBRATO ELLIPTA 92 MIKROGRAMM/55 MIKROGRAMM/22 MIKROGRAMM EINZELDOSIE [Concomitant]
     Dosage: 1 DOSAGE FORMS DAILY; 92|55|22 MCG, 1-0-0-0
     Route: 055
  12. ATORVASTATIN [Concomitant]
     Active Substance: ATORVASTATIN
     Dosage: 20 MILLIGRAM DAILY; 0-0-1-0

REACTIONS (8)
  - Headache [Unknown]
  - Prolonged expiration [Unknown]
  - Atrial fibrillation [Unknown]
  - Dizziness [Unknown]
  - Dyspnoea [Unknown]
  - Oxygen saturation decreased [Unknown]
  - General physical health deterioration [Unknown]
  - Hypertension [Unknown]
